FAERS Safety Report 14933372 (Version 1)
Quarter: 2018Q2

REPORT INFORMATION
  Report Type: Spontaneous
  Country: ES (occurrence: ES)
  Receive Date: 20180524
  Receipt Date: 20180524
  Transmission Date: 20180711
  Serious: Yes (Life-Threatening, Hospitalization, Other)
  Sender: FDA-Public Use
  Company Number: ES-BAUSCH-BL-2018-014521

PATIENT
  Age: 56 Year
  Sex: Male

DRUGS (8)
  1. CYCLOPHOSPHAMIDE. [Suspect]
     Active Substance: CYCLOPHOSPHAMIDE
     Indication: PLASMA CELL MYELOMA
     Dosage: 500 MG ON 3 DAYS SPACED OVER ONE WEEK AND OVER 4 DAYS, 4 CYCLICAL
     Route: 065
  2. FLUDARABINE [Suspect]
     Active Substance: FLUDARABINE PHOSPHATE
     Indication: PLASMA CELL MYELOMA
     Dosage: 30 MG/METER SQUARE/DAY; CYCLICAL
     Route: 065
     Dates: start: 2015
  3. MELPHALAN. [Suspect]
     Active Substance: MELPHALAN
     Indication: PLASMA CELL MYELOMA
     Dosage: (INFUSING UP TO 150 MG/METER SQUARE), CYCLICAL
     Route: 065
     Dates: start: 2015
  4. THYMOGLOBULIN [Suspect]
     Active Substance: LAPINE T-LYMPHOCYTE IMMUNE GLOBULIN
     Indication: PLASMA CELL MYELOMA
     Dosage: 2 MG/METER SQUARE, CYCLICAL
     Route: 065
     Dates: start: 2015
  5. BORTEZOMIB [Suspect]
     Active Substance: BORTEZOMIB
     Indication: PLASMA CELL MYELOMA
     Dosage: 1.3 MG/METER SQUARE, CYCLICAL
     Route: 065
     Dates: start: 2015
  6. BORTEZOMIB [Suspect]
     Active Substance: BORTEZOMIB
     Dosage: 1.3 MG/METER SQUARE EVERY 4 DAYS, FOR A TOTAL OF 4 CYCLES
     Route: 065
  7. MELPHALAN. [Suspect]
     Active Substance: MELPHALAN
     Dosage: 70 MG/METER SQUARE, CYCLICAL
     Route: 065
     Dates: start: 2015
  8. DEXAMETHASONE. [Suspect]
     Active Substance: DEXAMETHASONE
     Indication: PLASMA CELL MYELOMA
     Dosage: 40 MG EVERY 2 DAYS FOR 12 DAYS, 4 CYCLICAL
     Route: 065

REACTIONS (1)
  - Bronchopulmonary aspergillosis [Unknown]

NARRATIVE: CASE EVENT DATE: 2015
